FAERS Safety Report 7711892-2 (Version None)
Quarter: 2011Q3

REPORT INFORMATION
  Report Type: 
  Country: None (occurrence: None)
  Receive Date: 20110826
  Receipt Date: 20110817
  Transmission Date: 20111222
  Serious: Yes (Hospitalization)
  Sender: FDA-Public Use
  Company Number: CA-BRISTOL-MYERS SQUIBB COMPANY-15876550

PATIENT
  Age: 62 Year
  Sex: Female

DRUGS (6)
  1. ORENCIA [Suspect]
     Indication: RHEUMATOID ARTHRITIS
     Dosage: NO OF INF:1
     Route: 042
     Dates: start: 20110621
  2. METHOTREXATE [Concomitant]
     Route: 048
  3. CALCITONIN SALMON [Concomitant]
  4. CALCIUM + VITAMIN D [Concomitant]
  5. MELOXICAM [Concomitant]
  6. FOLIC ACID [Concomitant]

REACTIONS (1)
  - MYELITIS TRANSVERSE [None]
